FAERS Safety Report 6219998-4 (Version None)
Quarter: 2009Q2

REPORT INFORMATION
  Report Type: 
  Country: None (occurrence: None)
  Receive Date: 20090609
  Receipt Date: 20090529
  Transmission Date: 20091009
  Serious: Yes (Other)
  Sender: FDA-Public Use
  Company Number: JP-BRISTOL-MYERS SQUIBB COMPANY-14642466

PATIENT
  Age: 31 Year
  Sex: Female
  Weight: 42 kg

DRUGS (3)
  1. ABILIFY [Suspect]
     Indication: SCHIZOPHRENIA
     Dosage: FORM-POWDER 12MG,23APR09-26APR09,4D 24MG,27APR09-30APR09,4D 30MG,01MAY09-08MAY09,8D
     Route: 048
     Dates: start: 20090423, end: 20090508
  2. SEROQUEL [Concomitant]
     Dates: start: 20090306
  3. ROHYPNOL [Concomitant]
     Dosage: FORM-TAB.
     Dates: start: 20090324

REACTIONS (3)
  - CONFUSIONAL STATE [None]
  - DELUSION [None]
  - PREGNANCY [None]
